FAERS Safety Report 25766278 (Version 1)
Quarter: 2025Q3

REPORT INFORMATION
  Report Type: Spontaneous
  Country: US (occurrence: US)
  Receive Date: 20250905
  Receipt Date: 20250905
  Transmission Date: 20251020
  Serious: Yes (Other)
  Sender: HIKMA
  Company Number: US-HIKMA PHARMACEUTICALS USA INC.-US-H14001-25-09840

PATIENT
  Sex: Female

DRUGS (4)
  1. AMIKACIN [Suspect]
     Active Substance: AMIKACIN
     Indication: Product used for unknown indication
     Route: 065
  2. AZITHROMYCIN [Suspect]
     Active Substance: AZITHROMYCIN
     Indication: Product used for unknown indication
     Route: 065
  3. DOXYCYCLINE [Suspect]
     Active Substance: DOXYCYCLINE
     Indication: Product used for unknown indication
     Route: 065
  4. RIFAMPIN [Suspect]
     Active Substance: RIFAMPIN
     Indication: Product used for unknown indication
     Route: 065

REACTIONS (8)
  - Dyspnoea exertional [Unknown]
  - Fatigue [Unknown]
  - Condition aggravated [Unknown]
  - Pulmonary oedema [Unknown]
  - Chronic obstructive pulmonary disease [Unknown]
  - Vasculitis [Unknown]
  - Hypertension [Unknown]
  - Acute kidney injury [Unknown]
